FAERS Safety Report 6855705-X (Version None)
Quarter: 2010Q3

REPORT INFORMATION
  Report Type: 
  Country: None (occurrence: None)
  Receive Date: 20100719
  Receipt Date: 20090915
  Transmission Date: 20110219
  Serious: No
  Sender: FDA-Public Use
  Company Number: US-KINGPHARMUSA00001-K200901136

PATIENT
  Age: 43 Year
  Sex: Female

DRUGS (4)
  1. LEVOXYL [Suspect]
     Indication: HYPOTHYROIDISM
     Dosage: 25 MCG, QD
     Route: 048
  2. LEVOXYL [Suspect]
     Dosage: 25 MCG,  PLUS 1/2 OF 25 MCG TABLET QD
     Route: 048
     Dates: start: 20090101
  3. LEVOXYL [Suspect]
     Dosage: 50 MCG QD
     Route: 048
     Dates: start: 20090629
  4. AMBIEN [Concomitant]
     Dosage: UNK, PRN

REACTIONS (1)
  - BLOOD THYROID STIMULATING HORMONE INCREASED [None]
